FAERS Safety Report 18287075 (Version 1)
Quarter: 2020Q3

REPORT INFORMATION
  Report Type: Spontaneous
  Country: IT (occurrence: IT)
  Receive Date: 20200921
  Receipt Date: 20200921
  Transmission Date: 20201103
  Serious: Yes (Hospitalization, Other)
  Sender: FDA-Public Use
  Company Number: IT-AUROBINDO-AUR-APL-2020-048381

PATIENT
  Age: 43 Year
  Sex: Female

DRUGS (11)
  1. PARACETAMOL/CODEINE [Suspect]
     Active Substance: ACETAMINOPHEN\CODEINE PHOSPHATE
     Indication: HEADACHE
     Dosage: UNK (STARTED AT THE AGE OF 27 YEARS)
     Route: 065
  2. MORPHINE [Suspect]
     Active Substance: MORPHINE
     Dosage: UNK(STARTED AT THE AGE OF 33?34 YEARS )
     Route: 065
  3. TOPIRAMATE. [Suspect]
     Active Substance: TOPIRAMATE
     Indication: HEADACHE
     Dosage: UNK (STARTED AT THE AGE OF 27 YEARS)
     Route: 065
  4. INDOMETHACIN. [Suspect]
     Active Substance: INDOMETHACIN
     Indication: HEADACHE
     Dosage: UNK
     Route: 030
  5. OXYCODONE;PARACETAMOL [Suspect]
     Active Substance: ACETAMINOPHEN\OXYCODONE HYDROCHLORIDE
     Indication: HEADACHE
     Dosage: UNK, ONCE A DAY (STARTED AT THE AGE OF 35 YEARS; UP TO 40 TABLETS PER DAY)
     Route: 065
  6. OXYCODONE;PARACETAMOL [Suspect]
     Active Substance: ACETAMINOPHEN\OXYCODONE HYDROCHLORIDE
     Indication: HEADACHE
     Dosage: UNK (STARTED AT THE AGE OF 27 YEARS)
     Route: 065
  7. PARACETAMOL/CODEINE [Suspect]
     Active Substance: ACETAMINOPHEN\CODEINE PHOSPHATE
     Indication: HEADACHE
     Dosage: UNK (STARTED AT THE AGE OF 33?34 YEARS; UP TO 20 TABLETS PER DAY)
     Route: 065
  8. FENTANYL. [Suspect]
     Active Substance: FENTANYL
     Indication: HEADACHE
     Dosage: UNK (STARTED AT THE AGE OF 40?43 YEARS)
     Route: 065
  9. INDOMETHACIN. [Suspect]
     Active Substance: INDOMETHACIN
     Dosage: UNK (STARTED AT THE AGE OF 20 YEARS )
     Route: 065
  10. NOVALGIN (METAMIZOLE SODIUM) [Suspect]
     Active Substance: METAMIZOLE SODIUM
     Indication: HEADACHE
     Dosage: UNK (STARTED AT THE AGE OF 4 YEARS)
     Route: 065
  11. MORPHINE [Suspect]
     Active Substance: MORPHINE
     Indication: HEADACHE
     Dosage: UNK (DRIP; STARTED AT THE AGE OF 20 YEARS)
     Route: 065

REACTIONS (5)
  - Gastric haemorrhage [Unknown]
  - Duodenal ulcer [Unknown]
  - Intentional product misuse [Unknown]
  - Gastric ulcer [Unknown]
  - Intentional overdose [Unknown]
